FAERS Safety Report 20687411 (Version 1)
Quarter: 2022Q2

REPORT INFORMATION
  Report Type: Spontaneous
  Country: DK (occurrence: DK)
  Receive Date: 20220408
  Receipt Date: 20220408
  Transmission Date: 20220721
  Serious: Yes (Other)
  Sender: FDA-Public Use
  Company Number: None

PATIENT
  Age: 82 Year
  Sex: Female

DRUGS (2)
  1. PREDNISOLONE [Suspect]
     Active Substance: PREDNISOLONE
     Indication: Myositis
     Dosage: 50 MILLIGRAM DAILY; DOSAGE: 50 MG ONCE A DAY, ON 17NOV2021 CHANGED TO 25 MG ONCE A DAY
     Route: 048
     Dates: start: 20211001
  2. PREDNISOLONE [Suspect]
     Active Substance: PREDNISOLONE
     Indication: Myositis
     Dosage: 10 MILLIGRAM DAILY; DOSAGE: 10 MG ONCE A DAY, ON 17NOV2021 CHANGED TO 5 MG ONCE A DAY
     Route: 048
     Dates: start: 20211001

REACTIONS (1)
  - Steroid diabetes [Unknown]

NARRATIVE: CASE EVENT DATE: 20211116
